FAERS Safety Report 17914450 (Version 1)
Quarter: 2020Q2

REPORT INFORMATION
  Report Type: Spontaneous
  Country: US (occurrence: US)
  Receive Date: 20200618
  Receipt Date: 20200618
  Transmission Date: 20200714
  Serious: No
  Sender: FDA-Public Use
  Company Number: US-ADAMAS PHARMA, LLC-2020ADA00897

PATIENT
  Age: 67 Year
  Sex: Male

DRUGS (7)
  1. GOCOVRI [Suspect]
     Active Substance: AMANTADINE
     Indication: PARKINSON^S DISEASE
     Dosage: 68.5 MG, 1X/DAY AT BEDTIME
     Route: 048
     Dates: start: 20191001, end: 202003
  2. PRAMIPEXOLE. [Concomitant]
     Active Substance: PRAMIPEXOLE
  3. CARBIDOPA. [Concomitant]
     Active Substance: CARBIDOPA
  4. JANUVIA [Concomitant]
     Active Substance: SITAGLIPTIN PHOSPHATE
  5. SINEMET [Concomitant]
     Active Substance: CARBIDOPA\LEVODOPA
  6. GOCOVRI [Suspect]
     Active Substance: AMANTADINE
     Indication: DYSKINESIA
     Dosage: 137 MG (2 CAPSULES), 1X/DAY AT BEDTIME
     Route: 048
     Dates: start: 202003
  7. METFORMIN [Concomitant]
     Active Substance: METFORMIN HYDROCHLORIDE

REACTIONS (2)
  - Dizziness [Not Recovered/Not Resolved]
  - Fall [Unknown]

NARRATIVE: CASE EVENT DATE: 202004
